FAERS Safety Report 6629513-9 (Version None)
Quarter: 2010Q1

REPORT INFORMATION
  Report Type: 
  Country: None (occurrence: None)
  Receive Date: 20100311
  Receipt Date: 20090722
  Transmission Date: 20100710
  Serious: No
  Sender: FDA-Public Use
  Company Number: US-BIOGENIDEC-2009BI022750

PATIENT
  Age: 66 Year
  Sex: Female

DRUGS (5)
  1. AVONEX [Suspect]
     Indication: MULTIPLE SCLEROSIS
     Route: 030
     Dates: start: 20090501, end: 20090501
  2. AVONEX [Suspect]
     Route: 030
     Dates: start: 20090501, end: 20090501
  3. AVONEX [Suspect]
     Route: 030
     Dates: start: 20090501, end: 20090501
  4. AVONEX [Suspect]
     Route: 030
     Dates: start: 20090601
  5. IBUPROFEN [Concomitant]
     Indication: PREMEDICATION
     Route: 048

REACTIONS (2)
  - FEELING ABNORMAL [None]
  - HEADACHE [None]
